FAERS Safety Report 13681863 (Version 1)
Quarter: 2017Q2

REPORT INFORMATION
  Report Type: Spontaneous
  Country: US (occurrence: US)
  Receive Date: 20170623
  Receipt Date: 20170623
  Transmission Date: 20170830
  Serious: Yes (Disabling)
  Sender: FDA-Public Use
  Company Number: None

PATIENT
  Age: 71 Year
  Sex: Female
  Weight: 90.8 kg

DRUGS (6)
  1. ALCON [Concomitant]
  2. GARLIC. [Concomitant]
     Active Substance: GARLIC
  3. SYNTHROID [Suspect]
     Active Substance: LEVOTHYROXINE SODIUM
     Indication: HYPOTHYROIDISM
     Dosage: 50 MCG 1 PILL ONCE A DAY MORNING MOUTH
     Route: 048
     Dates: start: 198609
  4. MELATONIN [Concomitant]
     Active Substance: MELATONIN
  5. KYLOIC [Concomitant]
  6. BILBERRY [Concomitant]
     Active Substance: BILBERRY

REACTIONS (3)
  - Hypoaesthesia [None]
  - Insomnia [None]
  - Sleep disorder [None]

NARRATIVE: CASE EVENT DATE: 19900920
